FAERS Safety Report 13065521 (Version 1)
Quarter: 2016Q4

REPORT INFORMATION
  Report Type: Spontaneous
  Country: GB (occurrence: GB)
  Receive Date: 20161227
  Receipt Date: 20161227
  Transmission Date: 20170207
  Serious: Yes (Other)
  Sender: FDA-Public Use
  Company Number: GB-PFIZER INC-2016591591

PATIENT
  Sex: Female

DRUGS (2)
  1. VENLAFAXINE HCL [Suspect]
     Active Substance: VENLAFAXINE HYDROCHLORIDE
     Indication: TRIGEMINAL NERVE DISORDER
     Dosage: 37.5 MG, DAILY
     Route: 065
  2. VENLAFAXINE HCL [Suspect]
     Active Substance: VENLAFAXINE HYDROCHLORIDE
     Indication: ERYTHROMELALGIA

REACTIONS (8)
  - Haemorrhage [Unknown]
  - Drug ineffective [Unknown]
  - Arrhythmia [Unknown]
  - Nightmare [Unknown]
  - Drug intolerance [Unknown]
  - Insomnia [Unknown]
  - Intentional product use issue [Unknown]
  - Product use issue [Unknown]
